FAERS Safety Report 4913795-5 (Version None)
Quarter: 2006Q1

REPORT INFORMATION
  Report Type: 
  Country: None (occurrence: None)
  Receive Date: 20060216
  Receipt Date: 20060210
  Transmission Date: 20060701
  Serious: Yes (Other)
  Sender: FDA-Public Use
  Company Number: LV-GLAXOSMITHKLINE-B0411644A

PATIENT
  Age: 48 Year
  Sex: Female
  Weight: 105 kg

DRUGS (4)
  1. AVANDAMET [Suspect]
     Dosage: 1TAB TWICE PER DAY
     Dates: start: 20051101
  2. NOVONORM [Concomitant]
     Dosage: 3MG PER DAY
  3. ATORVASTATIN CALCIUM [Concomitant]
     Dosage: 10MG PER DAY
  4. ACE INHIBITOR [Concomitant]

REACTIONS (3)
  - ANAEMIA [None]
  - HAEMOGLOBIN DECREASED [None]
  - PALLOR [None]
